FAERS Safety Report 5337235-X (Version None)
Quarter: 2007Q2

REPORT INFORMATION
  Report Type: 
  Country: None (occurrence: None)
  Receive Date: 20070529
  Receipt Date: 20070525
  Transmission Date: 20071010
  Serious: Yes (Hospitalization)
  Sender: FDA-Public Use
  Company Number: A0653021A

PATIENT
  Age: 71 Year
  Sex: Male

DRUGS (9)
  1. ADVAIR DISKUS 100/50 [Suspect]
     Indication: CHRONIC OBSTRUCTIVE PULMONARY DISEASE
     Dosage: 1PUFF TWICE PER DAY
     Route: 055
     Dates: start: 20040101
  2. SPIRIVA [Concomitant]
  3. LORAZEPAM [Concomitant]
  4. CLONIDINE [Concomitant]
  5. TOPROL-XL [Concomitant]
  6. BENICAR [Concomitant]
  7. VYTORIN [Concomitant]
  8. PROTONIX [Concomitant]
  9. SINGULAIR [Concomitant]

REACTIONS (3)
  - NASOPHARYNGITIS [None]
  - PNEUMONIA [None]
  - RESPIRATORY TRACT INFECTION [None]
